FAERS Safety Report 22151707 (Version 1)
Quarter: 2023Q1

REPORT INFORMATION
  Report Type: Other
  Country: CO (occurrence: None)
  Receive Date: 20230329
  Receipt Date: 20230329
  Transmission Date: 20230417
  Serious: Yes (Other)
  Sender: FDA-Public Use
  Company Number: CO-ROCHE-3316262

PATIENT
  Age: 68 Year
  Sex: Female

DRUGS (5)
  1. ATEZOLIZUMAB [Suspect]
     Active Substance: ATEZOLIZUMAB
     Indication: Neoplasm
     Dosage: ON 26/JAN/2023, SHE RECEIVED MOST RECENT DOSE OF 1200 MG OF ATEZOLIZUMAB ADMINISTERED PRIOR TO AE/SA
     Route: 041
     Dates: start: 20220921
  2. PACLITAXEL [Suspect]
     Active Substance: PACLITAXEL
     Indication: Neoplasm
     Dosage: ON 16/DEC/2022, SHE RECEIVED MOST RECENT DOSE OF 231 MG OF PACLITAXEL PRIOR TO AE/SAE.
     Route: 042
     Dates: start: 20220921, end: 20221216
  3. CARBOPLATIN [Suspect]
     Active Substance: CARBOPLATIN
     Indication: Neoplasm
     Dosage: ON 16/DEC/2022, SHE RECEIVED MOST RECENT DOSE OF 450 MG OF CARBOPLATIN PRIOR TO AE/SAE.
     Route: 042
     Dates: start: 20220921, end: 20221216
  4. OSIMERTINIB [Suspect]
     Active Substance: OSIMERTINIB
     Indication: Neoplasm
     Dosage: ON 21/SEP/2022, SHE RECEIVED MOST RECENT DOSE OF 80 MG OF OSIMERTINIB PRIOR TO AE/SAE.
     Route: 048
     Dates: start: 202203, end: 202209
  5. BEVACIZUMAB [Suspect]
     Active Substance: BEVACIZUMAB
     Indication: Neoplasm
     Dosage: ON 26/JAN/2023, SHE RECEIVED MOST RECENT DOSE OF 15 MG/KG OF BEVACIZUMAB PRIOR TO AE/SAE.
     Route: 042
     Dates: start: 20220921

REACTIONS (1)
  - Hepatotoxicity [Recovering/Resolving]

NARRATIVE: CASE EVENT DATE: 20230217
